FAERS Safety Report 8245789-9 (Version None)
Quarter: 2012Q1

REPORT INFORMATION
  Report Type: 
  Country: None (occurrence: None)
  Receive Date: 20120330
  Receipt Date: 20120327
  Transmission Date: 20120608
  Serious: No
  Sender: FDA-Public Use
  Company Number: US-BIOGENIDEC-2012BI010850

PATIENT
  Sex: Male

DRUGS (2)
  1. TYSABRI [Suspect]
     Indication: MULTIPLE SCLEROSIS
     Route: 042
     Dates: start: 20080724, end: 20101021
  2. TYSABRI [Suspect]
     Route: 042
     Dates: start: 20110317

REACTIONS (3)
  - HAIR COLOUR CHANGES [None]
  - DEPRESSED MOOD [None]
  - ALOPECIA [None]
